FAERS Safety Report 7628818 (Version 5)
Quarter: 2013Q2

REPORT INFORMATION
  Report Type: Spontaneous
  Country: US (occurrence: US)
  Receive Date: 20101014
  Receipt Date: 20130510
  Transmission Date: 20140414
  Serious: Yes (Other)
  Sender: FDA-Public Use
  Company Number: US-BAYER-201036414NA

PATIENT
  Age: 23 Year
  Sex: Female
  Weight: 61.22 kg

DRUGS (3)
  1. YASMIN [Suspect]
     Indication: ACNE
     Dosage: UNK
     Route: 048
     Dates: start: 200612, end: 200709
  2. LEVOTHYROXIN [Concomitant]
     Indication: HYPOTHYROIDISM
     Dosage: UNK
     Dates: start: 200709, end: 200912
  3. NSAID^S [Concomitant]
     Dosage: UNK UNK, PRN

REACTIONS (3)
  - Thrombophlebitis superficial [None]
  - Thrombosis [None]
  - Injury [Unknown]
